FAERS Safety Report 9207420 (Version 2)
Quarter: 2014Q1

REPORT INFORMATION
  Report Type: Spontaneous
  Country: US (occurrence: US)
  Receive Date: 20130403
  Receipt Date: 20140121
  Transmission Date: 20141002
  Serious: Yes (Hospitalization)
  Sender: FDA-Public Use
  Company Number: US-B.I. PHARMACEUTICALS,INC./RIDGEFIELD-2013-BI-08058BP

PATIENT
  Age: 51 Year
  Sex: Female
  Weight: 68 kg

DRUGS (28)
  1. SPIRIVA [Suspect]
     Indication: CHRONIC OBSTRUCTIVE PULMONARY DISEASE
     Dosage: 18 MCG
     Route: 055
     Dates: start: 201210
  2. SPIRIVA [Suspect]
     Indication: CHRONIC OBSTRUCTIVE PULMONARY DISEASE
     Route: 048
     Dates: start: 20130322, end: 20130322
  3. SPIRIVA [Suspect]
     Dosage: 18 MCG
     Route: 055
     Dates: start: 2012
  4. XOPENEX [Concomitant]
     Indication: DYSPNOEA
  5. XOPENEX [Concomitant]
     Indication: ASTHMA
     Dosage: 2 PUF
     Route: 055
     Dates: start: 2011
  6. IPRATROPIUM BROMIDE/ALBUTEROL SULFATE [Concomitant]
     Indication: CHRONIC OBSTRUCTIVE PULMONARY DISEASE
     Route: 055
  7. ZYRTEC [Concomitant]
     Indication: SEASONAL ALLERGY
     Dosage: 10 MG
     Route: 048
     Dates: start: 2009
  8. ZYRTEC [Concomitant]
     Indication: HYPERSENSITIVITY
  9. CYMBALTA [Concomitant]
     Indication: PAIN
     Dosage: 60 MG
     Route: 048
  10. ASTHMACLEAR [Concomitant]
     Indication: ASTHMA
     Route: 048
  11. ESTERC PLUS [Concomitant]
     Indication: IMMUNE ENHANCEMENT THERAPY
     Dosage: 1000 MG
     Route: 048
     Dates: start: 2010
  12. NORWEGIAN GOLD FISH OIL [Concomitant]
     Indication: CARDIAC DISORDER
     Route: 048
  13. ORIGINAL BLACK SEED [Concomitant]
     Indication: ASTHMA
     Route: 048
  14. ORIGINAL BLACK SEED [Concomitant]
     Indication: SYSTEMIC LUPUS ERYTHEMATOSUS
  15. COQ10 [Concomitant]
     Indication: CARDIAC DISORDER
     Route: 048
     Dates: start: 200904
  16. COQ10 [Concomitant]
     Indication: CARDIAC DISORDER
  17. TOPAMAX [Concomitant]
     Dosage: 200 MG
     Route: 048
  18. CLONAZEPAM [Concomitant]
     Indication: CONVULSION
     Dosage: 1 MG
     Route: 048
  19. CLONAZEPAM [Concomitant]
     Indication: ANXIETY
     Dosage: 0.5 MG
     Route: 048
     Dates: start: 200809
  20. SINGULAIR [Concomitant]
     Indication: ASTHMA
     Dosage: 20 MG
     Route: 048
     Dates: start: 2009
  21. SINGULAIR [Concomitant]
     Dosage: 10 MG
     Route: 048
     Dates: start: 2009
  22. ALLERGIES SHOTS [Concomitant]
     Indication: HYPERSENSITIVITY
     Dosage: SUBCUTANEOUS
     Route: 058
     Dates: start: 2011
  23. B 12 [Concomitant]
     Indication: VITAMIN B12 DEFICIENCY
     Dosage: SUBCUTANEOUS
     Route: 058
     Dates: start: 2013
  24. VITAMIN D3 [Concomitant]
     Indication: VITAMIN D DEFICIENCY
     Dosage: 5000 MG
     Route: 048
     Dates: start: 2012
  25. PLAQUENIL [Concomitant]
     Indication: SYSTEMIC LUPUS ERYTHEMATOSUS
     Dosage: 400 MG
     Route: 048
     Dates: start: 2010
  26. OMEPRAZOLE [Concomitant]
     Indication: GASTROOESOPHAGEAL REFLUX DISEASE
     Dosage: 20 MG
     Route: 048
     Dates: start: 200812
  27. ATROVENT [Concomitant]
     Indication: LUNG DISORDER
     Dosage: 2 PUF
     Route: 045
     Dates: start: 200909
  28. TOPIRAMATE [Concomitant]
     Indication: TREMOR
     Dosage: 200 MG
     Route: 048
     Dates: start: 2012

REACTIONS (11)
  - Fluid retention [Recovered/Resolved]
  - Infection [Recovered/Resolved]
  - Dyspnoea [Not Recovered/Not Resolved]
  - Immunoglobulins decreased [Not Recovered/Not Resolved]
  - Respiratory tract infection [Recovered/Resolved]
  - Pyrexia [Recovered/Resolved]
  - Dysphonia [Not Recovered/Not Resolved]
  - Incorrect route of drug administration [Recovered/Resolved]
  - Product quality issue [Unknown]
  - Product quality issue [Unknown]
  - Product quality issue [Unknown]
